FAERS Safety Report 9433853 (Version 1)
Quarter: 2013Q3

REPORT INFORMATION
  Report Type: Spontaneous
  Country: US (occurrence: US)
  Receive Date: 20130731
  Receipt Date: 20130731
  Transmission Date: 20140515
  Serious: No
  Sender: FDA-Public Use
  Company Number: US-ASTRAZENECA-2013SE51131

PATIENT
  Age: 48 Year
  Sex: Male
  Weight: 88.5 kg

DRUGS (5)
  1. SEROQUEL [Suspect]
     Indication: SLEEP DISORDER
     Route: 048
     Dates: start: 201305
  2. SEROQUEL [Suspect]
     Indication: PANIC ATTACK
     Route: 048
     Dates: start: 201305
  3. METOFORMIN [Concomitant]
     Indication: DIABETES MELLITUS
     Dates: start: 2009
  4. ZOLOFT [Concomitant]
     Indication: ANXIETY
     Dates: start: 2013
  5. FISH OIL [Concomitant]
     Indication: NERVOUS SYSTEM DISORDER

REACTIONS (7)
  - Apathy [Unknown]
  - Activities of daily living impaired [Unknown]
  - Blood cholesterol increased [Unknown]
  - Sedation [Unknown]
  - Somnolence [Unknown]
  - Drug ineffective for unapproved indication [Unknown]
  - Off label use [Unknown]
